FAERS Safety Report 4410750-9 (Version None)
Quarter: 2004Q3

REPORT INFORMATION
  Report Type: 
  Country: None (occurrence: None)
  Receive Date: 20040726
  Receipt Date: 20040712
  Transmission Date: 20050211
  Serious: Yes (Other)
  Sender: FDA-Public Use
  Company Number: US-JNJFOC-20040703415

PATIENT
  Age: 33 Year
  Sex: Female
  Weight: 108.8633 kg

DRUGS (5)
  1. REMICADE [Suspect]
     Indication: INFLAMMATORY BOWEL DISEASE
     Dosage: INTRAVENOUS
     Route: 042
     Dates: start: 20030201
  2. REMICADE [Suspect]
     Indication: INFLAMMATORY BOWEL DISEASE
     Dosage: INTRAVENOUS
     Route: 042
     Dates: start: 20040501
  3. METHOTREXATE SODIUM [Concomitant]
  4. FOLIC ACID [Concomitant]
  5. ALLEGRA [Concomitant]

REACTIONS (1)
  - LUPUS-LIKE SYNDROME [None]
